FAERS Safety Report 6147851-3 (Version None)
Quarter: 2009Q2

REPORT INFORMATION
  Report Type: 
  Country: None (occurrence: None)
  Receive Date: 20090408
  Receipt Date: 20090402
  Transmission Date: 20091009
  Serious: Yes (Hospitalization, Disabling)
  Sender: FDA-Public Use
  Company Number: RU-JNJFOC-20090400115

PATIENT
  Age: 40 Year
  Sex: Female
  Weight: 58 kg

DRUGS (3)
  1. REMICADE [Suspect]
     Indication: CROHN'S DISEASE
     Route: 042
  2. SULSASALAZINE [Concomitant]
     Indication: CROHN'S DISEASE
  3. AZATHIOPRINE [Concomitant]
     Indication: CROHN'S DISEASE

REACTIONS (2)
  - BACTERIAL SEPSIS [None]
  - DISSEMINATED TUBERCULOSIS [None]
